FAERS Safety Report 9115137 (Version 1)
Quarter: 2013Q1

REPORT INFORMATION
  Report Type: Spontaneous
  Country: US (occurrence: US)
  Receive Date: 20130225
  Receipt Date: 20130225
  Transmission Date: 20140127
  Serious: Yes (Other)
  Sender: FDA-Public Use
  Company Number: US-BAYER-2013-021979

PATIENT
  Sex: Male

DRUGS (1)
  1. CIPRO [Suspect]

REACTIONS (3)
  - Throat tightness [None]
  - Pruritus [None]
  - Oral pruritus [None]
